FAERS Safety Report 8286299-2 (Version None)
Quarter: 2012Q1

REPORT INFORMATION
  Report Type: 
  Country: None (occurrence: None)
  Receive Date: 20120314
  Receipt Date: 20100922
  Transmission Date: 20120608
  Serious: No
  Sender: FDA-Public Use
  Company Number: PHHY2010US64451

PATIENT
  Sex: Male

DRUGS (4)
  1. ZOLOFT [Concomitant]
  2. FANAPT [Suspect]
     Dosage: UNK
  3. NAPROXEN [Concomitant]
  4. FLEXERIL [Concomitant]

REACTIONS (1)
  - DREAMY STATE [None]
